FAERS Safety Report 17549953 (Version 2)
Quarter: 2020Q1

REPORT INFORMATION
  Report Type: Spontaneous
  Country: US (occurrence: US)
  Receive Date: 20200317
  Receipt Date: 20200323
  Transmission Date: 20200409
  Serious: No
  Sender: FDA-Public Use
  Company Number: US-PFIZER INC-2020113436

PATIENT
  Age: 46 Year
  Sex: Male
  Weight: 108.8 kg

DRUGS (1)
  1. KERYDIN [Suspect]
     Active Substance: TAVABOROLE
     Indication: ONYCHOMYCOSIS
     Dosage: UNK

REACTIONS (3)
  - Pain [Unknown]
  - Dry skin [Unknown]
  - Skin fissures [Unknown]
